FAERS Safety Report 5721173-4 (Version None)
Quarter: 2008Q2

REPORT INFORMATION
  Report Type: 
  Country: None (occurrence: None)
  Receive Date: 20080429
  Receipt Date: 20080422
  Transmission Date: 20081010
  Serious: Yes (Hospitalization)
  Sender: FDA-Public Use
  Company Number: B0517649A

PATIENT
  Age: 27 Year
  Sex: Female

DRUGS (2)
  1. AUGMENTIN '125' [Suspect]
     Indication: INFLUENZA LIKE ILLNESS
     Route: 048
     Dates: start: 20080311, end: 20080312
  2. TAVANIC [Suspect]
     Indication: INFLUENZA LIKE ILLNESS
     Route: 048
     Dates: start: 20080310, end: 20080311

REACTIONS (3)
  - CONDITION AGGRAVATED [None]
  - FACE OEDEMA [None]
  - RASH MACULO-PAPULAR [None]
